FAERS Safety Report 24220062 (Version 1)
Quarter: 2024Q3

REPORT INFORMATION
  Report Type: Spontaneous
  Country: US (occurrence: US)
  Receive Date: 20240817
  Receipt Date: 20240817
  Transmission Date: 20241017
  Serious: Yes (Other)
  Sender: TEVA
  Company Number: US-TEVA-VS-3232022

PATIENT
  Sex: Female

DRUGS (1)
  1. AUSTEDO XR [Suspect]
     Active Substance: DEUTETRABENAZINE
     Indication: Product used for unknown indication
     Dosage: (4-WEEK PATIENT TITRATION KIT)/  DEUTETRABENAZINE 6,12,24 MG
     Route: 065

REACTIONS (2)
  - Central nervous system lesion [Unknown]
  - Tremor [Unknown]
